FAERS Safety Report 10145031 (Version 2)
Quarter: 2014Q2

REPORT INFORMATION
  Report Type: Spontaneous
  Country: US (occurrence: US)
  Receive Date: 20140501
  Receipt Date: 20140521
  Transmission Date: 20141212
  Serious: Yes (Hospitalization, Other)
  Sender: FDA-Public Use
  Company Number: US-AMGEN INC.-USASP2014030675

PATIENT
  Age: 72 Year
  Sex: Female
  Weight: 66.21 kg

DRUGS (13)
  1. ENBREL [Suspect]
     Indication: RHEUMATOID ARTHRITIS
     Dosage: 25 MG, QWK
     Route: 058
     Dates: start: 20000901, end: 20140222
  2. METHOTREXATE [Concomitant]
     Dosage: 10 MG, QWK
  3. ALBUTEROL SULFATE [Concomitant]
     Dosage: 3 ML
  4. ALENDRONATE [Concomitant]
     Dosage: 35 MG, UNK
  5. ATENOLOL [Concomitant]
     Dosage: 25 MG, UNK
  6. FELODIPINE [Concomitant]
     Dosage: 5 MG, UNK
  7. FLOVENT HFA [Concomitant]
     Dosage: 220 MUG, UNK
  8. FOLIC ACID [Concomitant]
     Dosage: 1 MG, UNK
  9. IBUPROFEN [Concomitant]
     Dosage: 600 MG, UNK
  10. LEVOTHYROXINE [Concomitant]
     Dosage: 75 MUG, UNK
  11. LOSARTAN [Concomitant]
     Dosage: 100 MG, UNK
  12. TRIAMTERENE [Concomitant]
     Dosage: 37.5 MG, UNK
  13. HYDROCHLOROTHIAZIDE [Concomitant]
     Dosage: 25 MG, UNK

REACTIONS (6)
  - Tongue carcinoma stage I [Recovering/Resolving]
  - Cataract [Unknown]
  - Pneumonia [Unknown]
  - Pain [Not Recovered/Not Resolved]
  - Weight decreased [Unknown]
  - Fatigue [Unknown]
